FAERS Safety Report 7302025 (Version 12)
Quarter: 2013Q4

REPORT INFORMATION
  Report Type: Spontaneous
  Country: CA (occurrence: CA)
  Receive Date: 20100302
  Receipt Date: 20131210
  Transmission Date: 20140711
  Serious: Yes (Other)
  Sender: FDA-Public Use
  Company Number: CA-ROCHE-GNE298667

PATIENT
  Age: 50 Year
  Sex: Male

DRUGS (8)
  1. XOLAIR [Suspect]
     Indication: ASTHMA
     Route: 058
     Dates: start: 20090519
  2. XOLAIR [Suspect]
     Route: 065
     Dates: start: 20130328
  3. XOLAIR [Suspect]
     Route: 065
     Dates: start: 20130620
  4. XOLAIR [Suspect]
     Route: 065
     Dates: start: 20131205
  5. SPIRIVA [Concomitant]
     Route: 065
  6. ADVAIR [Concomitant]
  7. SINGULAIR [Concomitant]
  8. VENTOLIN [Concomitant]

REACTIONS (13)
  - Pneumonia [Unknown]
  - Cholelithiasis obstructive [Unknown]
  - Haemorrhage [Unknown]
  - Cough [Unknown]
  - Dyspnoea [Unknown]
  - Headache [Recovered/Resolved]
  - Pyrexia [Recovered/Resolved]
  - Injection site swelling [Unknown]
  - No therapeutic response [Unknown]
  - Heart rate increased [Unknown]
  - Vomiting [Unknown]
  - Abdominal pain upper [Unknown]
  - Blood pressure increased [Not Recovered/Not Resolved]
